FAERS Safety Report 4604933-2 (Version None)
Quarter: 2005Q1

REPORT INFORMATION
  Report Type: 
  Country: None (occurrence: None)
  Receive Date: 20050310
  Receipt Date: 20050310
  Transmission Date: 20050727
  Serious: No
  Sender: FDA-Public Use
  Company Number: None

PATIENT
  Age: 24 Year
  Sex: Female

DRUGS (1)
  1. ORTHO EVRA [Suspect]
     Indication: DEEP VEIN THROMBOSIS
     Dosage: WEEKLY CYCLIC USE CUTANEOUS
     Route: 003
     Dates: start: 20040322, end: 20040715

REACTIONS (2)
  - ANTIPHOSPHOLIPID ANTIBODIES POSITIVE [None]
  - DEEP VEIN THROMBOSIS [None]
